FAERS Safety Report 23637768 (Version 4)
Quarter: 2025Q1

REPORT INFORMATION
  Report Type: Spontaneous
  Country: US (occurrence: US)
  Receive Date: 20240315
  Receipt Date: 20250222
  Transmission Date: 20250408
  Serious: No
  Sender: SANOFI AVENTIS
  Company Number: US-SA-SAC20240313001000

PATIENT
  Age: 17 Year
  Sex: Female

DRUGS (2)
  1. DUPIXENT [Suspect]
     Active Substance: DUPILUMAB
     Indication: Dermatitis atopic
     Dosage: 200 MG, QOW
     Route: 058
     Dates: start: 202304, end: 202501
  2. DUPIXENT [Suspect]
     Active Substance: DUPILUMAB
     Dosage: 300MG, QOW
     Route: 058
     Dates: start: 202301

REACTIONS (6)
  - Eye swelling [Recovering/Resolving]
  - Eye irritation [Unknown]
  - Eye pruritus [Recovering/Resolving]
  - Dermatitis atopic [Unknown]
  - Wisdom teeth removal [Unknown]
  - Therapeutic response decreased [Unknown]

NARRATIVE: CASE EVENT DATE: 20241001
